FAERS Safety Report 7110969-2 (Version None)
Quarter: 2010Q4

REPORT INFORMATION
  Report Type: 
  Country: None (occurrence: None)
  Receive Date: 20101112
  Receipt Date: 20101105
  Transmission Date: 20110411
  Serious: Yes (Other)
  Sender: FDA-Public Use
  Company Number: 1000017017

PATIENT
  Age: 58 Year
  Sex: Male

DRUGS (2)
  1. CELEXA [Suspect]
     Indication: DEPRESSION
     Dosage: (10 MILLIGRAM, TABLETS)ORAL
     Route: 048
     Dates: start: 20100705, end: 20100901
  2. VICODIN (VICODIN) (VICODIN) [Concomitant]

REACTIONS (11)
  - ARTHROPATHY [None]
  - CONFUSIONAL STATE [None]
  - DISTURBANCE IN ATTENTION [None]
  - DIZZINESS [None]
  - DYSPNOEA [None]
  - EXTREMITY CONTRACTURE [None]
  - FATIGUE [None]
  - FEELING ABNORMAL [None]
  - HEADACHE [None]
  - HYPOAESTHESIA [None]
  - MUSCULAR WEAKNESS [None]
